FAERS Safety Report 5347642-7 (Version None)
Quarter: 2007Q2

REPORT INFORMATION
  Report Type: 
  Country: None (occurrence: None)
  Receive Date: 20070606
  Receipt Date: 20070601
  Transmission Date: 20071010
  Serious: Yes (Death, Hospitalization)
  Sender: FDA-Public Use
  Company Number: PHHO2007ES09291

PATIENT
  Age: 55 Year
  Sex: Female

DRUGS (8)
  1. CYCLOSPORINE [Suspect]
     Indication: RENAL TRANSPLANT
     Dosage: 75 MG, BID
     Route: 048
     Dates: start: 20041121
  2. RANITIDINE [Concomitant]
  3. PREDNISONE TAB [Concomitant]
     Dates: start: 20050901
  4. CARDYL [Concomitant]
  5. CALCIUM SANDOZ [Concomitant]
  6. MYCOPHENOLATE MOFETIL [Suspect]
     Indication: RENAL TRANSPLANT
     Dosage: 1000 MG, BID
     Route: 048
     Dates: start: 20041121
  7. CORTICOSTEROIDS [Suspect]
     Indication: RENAL TRANSPLANT
     Route: 065
  8. AMLODIPINE [Concomitant]

REACTIONS (14)
  - ASPIRATION PLEURAL CAVITY [None]
  - ATELECTASIS [None]
  - DYSPNOEA [None]
  - FACE OEDEMA [None]
  - LOCALISED OEDEMA [None]
  - LYMPHADENOPATHY [None]
  - MALIGNANT NEOPLASM PROGRESSION [None]
  - MUSCULOSKELETAL PAIN [None]
  - NEOPLASM MALIGNANT [None]
  - PLEURAL EFFUSION [None]
  - PLEURITIC PAIN [None]
  - PULMONARY MASS [None]
  - RESPIRATORY FAILURE [None]
  - SUPERIOR VENA CAVAL OCCLUSION [None]
